FAERS Safety Report 14930848 (Version 1)
Quarter: 2018Q2

REPORT INFORMATION
  Report Type: Report from Study
  Country: None (occurrence: US)
  Receive Date: 20180524
  Receipt Date: 20180524
  Transmission Date: 20180711
  Serious: Yes (Other)
  Sender: FDA-Public Use
  Company Number: US-ABBVIE-17K-163-2089776-00

PATIENT
  Sex: Female

DRUGS (1)
  1. HUMIRA [Suspect]
     Active Substance: ADALIMUMAB
     Indication: COLITIS ULCERATIVE
     Route: 058

REACTIONS (6)
  - Stress [Unknown]
  - Nausea [Unknown]
  - Crohn^s disease [Unknown]
  - Gastrointestinal haemorrhage [Unknown]
  - Dizziness [Unknown]
  - Hypersensitivity [Unknown]
